FAERS Safety Report 6647070-8 (Version None)
Quarter: 2010Q1

REPORT INFORMATION
  Report Type: 
  Country: None (occurrence: None)
  Receive Date: 20100323
  Receipt Date: 20100310
  Transmission Date: 20100710
  Serious: Yes (Hospitalization, Other)
  Sender: FDA-Public Use
  Company Number: PHHY2010JP14755

PATIENT
  Age: 50 Year
  Sex: Male

DRUGS (10)
  1. NILOTINIB [Suspect]
     Indication: CHRONIC MYELOID LEUKAEMIA
     Dosage: 400 MG, BID
  2. DASATINIB [Suspect]
     Indication: CHRONIC MYELOID LEUKAEMIA
     Dosage: 100 MG DAILY
  3. DAUNORUBICIN HCL [Concomitant]
     Dosage: 50 MG/M2 FOR 5 DAYS
  4. CYTOSINE ARABINOSIDE [Concomitant]
     Dosage: 100 MG/M2 FOR 7 DAYS
  5. FLUDARABINE PHOSPHATE [Concomitant]
     Dosage: 30 MG/M2
  6. TACROLIMUS [Concomitant]
     Indication: PROPHYLAXIS
  7. DALTEPARIN [Concomitant]
     Indication: PROPHYLAXIS
  8. URSODEOXYCHOLIC ACID [Concomitant]
     Indication: PROPHYLAXIS
  9. PREDNISOLONE [Concomitant]
  10. MELPHALAN HYDROCHLORIDE [Concomitant]
     Dosage: 40 MG/M^2

REACTIONS (14)
  - ACUTE GRAFT VERSUS HOST DISEASE IN SKIN [None]
  - BLAST CRISIS IN MYELOGENOUS LEUKAEMIA [None]
  - BLOOD CREATININE INCREASED [None]
  - DRUG INEFFECTIVE [None]
  - MALIGNANT NEOPLASM PROGRESSION [None]
  - OEDEMA [None]
  - PANCYTOPENIA [None]
  - PLEURAL EFFUSION [None]
  - PNEUMONIA [None]
  - PYREXIA [None]
  - RASH [None]
  - STEM CELL TRANSPLANT [None]
  - SUBCUTANEOUS ABSCESS [None]
  - WHITE BLOOD CELL COUNT INCREASED [None]
